FAERS Safety Report 10617228 (Version 3)
Quarter: 2015Q2

REPORT INFORMATION
  Report Type: Spontaneous
  Country: US (occurrence: US)
  Receive Date: 20141201
  Receipt Date: 20150605
  Transmission Date: 20150821
  Serious: Yes (Hospitalization, Other)
  Sender: FDA-Public Use
  Company Number: US-BAYER-2014-174954

PATIENT
  Age: 27 Year
  Sex: Female
  Weight: 66 kg

DRUGS (1)
  1. MIRENA [Suspect]
     Active Substance: LEVONORGESTREL
     Indication: CONTRACEPTION
     Dosage: 20 MCG/24HR, CONT
     Route: 015
     Dates: start: 20101025, end: 20121123

REACTIONS (12)
  - Pain [Not Recovered/Not Resolved]
  - Menorrhagia [None]
  - Haemorrhage [None]
  - Pregnancy with contraceptive device [None]
  - Injury [Not Recovered/Not Resolved]
  - Menorrhagia [None]
  - Anxiety [None]
  - Uterine perforation [Not Recovered/Not Resolved]
  - Device dislocation [None]
  - Drug ineffective [None]
  - Device dislocation [Not Recovered/Not Resolved]
  - Depression [None]

NARRATIVE: CASE EVENT DATE: 2010
